FAERS Safety Report 9250692 (Version 2)
Quarter: 2013Q2

REPORT INFORMATION
  Report Type: Spontaneous
  Country: FR (occurrence: FR)
  Receive Date: 20130424
  Receipt Date: 20130430
  Transmission Date: 20140414
  Serious: Yes (Other)
  Sender: FDA-Public Use
  Company Number: FR-009507513-1304FRA010605

PATIENT
  Age: 74 Year
  Sex: Female

DRUGS (2)
  1. ALENDRONATE SODIUM [Suspect]
  2. DIAZEPAM [Concomitant]
     Indication: CONVULSION PROPHYLAXIS

REACTIONS (1)
  - Atypical fracture [Unknown]
